FAERS Safety Report 6508460-7 (Version None)
Quarter: 2009Q4

REPORT INFORMATION
  Report Type: 
  Country: None (occurrence: None)
  Receive Date: 20091221
  Receipt Date: 20081126
  Transmission Date: 20100525
  Serious: No
  Sender: FDA-Public Use
  Company Number: US-ASTRAZENECA-2008UW26459

PATIENT
  Sex: Female

DRUGS (4)
  1. CRESTOR [Suspect]
     Route: 048
  2. SYNTHROID [Concomitant]
  3. BUSPAR [Concomitant]
  4. TOPAMAX [Concomitant]

REACTIONS (3)
  - ASTHMA [None]
  - HEADACHE [None]
  - RHINITIS ALLERGIC [None]
